FAERS Safety Report 13412513 (Version 3)
Quarter: 2024Q1

REPORT INFORMATION
  Report Type: Spontaneous
  Country: US (occurrence: US)
  Receive Date: 20170406
  Receipt Date: 20240316
  Transmission Date: 20240410
  Serious: No
  Sender: FDA-Public Use
  Company Number: US-JNJFOC-20170309206

PATIENT
  Sex: Male

DRUGS (9)
  1. RISPERDAL [Suspect]
     Active Substance: RISPERIDONE
     Indication: Autism spectrum disorder
     Dosage: 0.25 MG AND 0.5 MG
     Route: 048
     Dates: start: 20070122, end: 20070330
  2. RISPERDAL [Suspect]
     Active Substance: RISPERIDONE
     Dosage: 0.5 MG AND 1 MG
     Route: 048
     Dates: start: 20070824, end: 20071220
  3. RISPERDAL [Suspect]
     Active Substance: RISPERIDONE
     Route: 048
     Dates: start: 20080414
  4. RISPERDAL [Suspect]
     Active Substance: RISPERIDONE
     Route: 048
     Dates: start: 20081029
  5. RISPERDAL [Suspect]
     Active Substance: RISPERIDONE
     Dosage: 1 MG AND 2 MG
     Route: 048
     Dates: start: 20090219, end: 20091027
  6. RISPERDAL [Suspect]
     Active Substance: RISPERIDONE
     Route: 048
     Dates: start: 20100502
  7. RISPERDAL [Suspect]
     Active Substance: RISPERIDONE
     Route: 048
     Dates: start: 20111007, end: 20161025
  8. RISPERIDONE [Suspect]
     Active Substance: RISPERIDONE
     Indication: Autism spectrum disorder
     Dosage: IN VARYING DOSES OF 0.5 MG, 2MG AND 3 MG
     Route: 065
     Dates: start: 20070122
  9. RISPERIDONE [Suspect]
     Active Substance: RISPERIDONE
     Indication: Autism spectrum disorder
     Route: 048
     Dates: start: 20111007, end: 20161025

REACTIONS (2)
  - Emotional disorder [Unknown]
  - Gynaecomastia [Unknown]
